FAERS Safety Report 19905652 (Version 1)
Quarter: 2021Q4

REPORT INFORMATION
  Report Type: Spontaneous
  Country: PT (occurrence: PT)
  Receive Date: 20211001
  Receipt Date: 20211001
  Transmission Date: 20220303
  Serious: Yes (Other)
  Sender: FDA-Public Use
  Company Number: 2021A748183

PATIENT
  Age: 7 Year
  Sex: Male

DRUGS (1)
  1. SELUMETINIB [Suspect]
     Active Substance: SELUMETINIB
     Route: 048
     Dates: start: 20210513, end: 20210528

REACTIONS (5)
  - Injury [Unknown]
  - Tibia fracture [Unknown]
  - Symptom recurrence [Unknown]
  - Mouth ulceration [Unknown]
  - Hypoalbuminaemia [Unknown]

NARRATIVE: CASE EVENT DATE: 20210306
